FAERS Safety Report 7930899-3 (Version None)
Quarter: 2011Q4

REPORT INFORMATION
  Report Type: 
  Country: None (occurrence: None)
  Receive Date: 20111121
  Receipt Date: 20111116
  Transmission Date: 20120403
  Serious: Yes (Other)
  Sender: FDA-Public Use
  Company Number: JP-PFIZER INC-2011280232

PATIENT
  Age: 72 Year
  Sex: Female

DRUGS (2)
  1. CYCLOPHOSPHAMIDE [Concomitant]
     Indication: ADJUVANT THERAPY
     Dosage: UNK
  2. EPIRUBICIN HYDROCHLORIDE [Suspect]
     Indication: ADJUVANT THERAPY
     Dosage: UNK

REACTIONS (1)
  - SKIN NECROSIS [None]
